FAERS Safety Report 7674569-8 (Version None)
Quarter: 2011Q3

REPORT INFORMATION
  Report Type: 
  Country: None (occurrence: None)
  Receive Date: 20110810
  Receipt Date: 20110802
  Transmission Date: 20111222
  Serious: Yes (Hospitalization)
  Sender: FDA-Public Use
  Company Number: NL-ROCHE-790528

PATIENT
  Sex: Female

DRUGS (8)
  1. BEVACIZUMAB [Suspect]
     Indication: BREAST CANCER METASTATIC
     Dosage: LAST DATE OF ADMINISTRATION 01 JUNE 2011
     Route: 042
     Dates: start: 20110323
  2. PACLITAXEL [Suspect]
     Indication: BREAST CANCER METASTATIC
     Dosage: LAST DATE OF ADMINISTRATION 01 JUNE 2011
     Route: 042
     Dates: start: 20110323
  3. METOPROLOL TARTRATE [Concomitant]
     Dosage: FREQENCY DAILY
     Route: 065
     Dates: start: 20110421
  4. BUPRENORPHINE [Concomitant]
     Dosage: DRUG REPOETED AS BUPRENORPHINE TRANSDERMAL
     Route: 062
     Dates: start: 20110524
  5. VENLAFAXINE [Concomitant]
     Dosage: FREQENCY DAILY
     Dates: start: 20110507
  6. OXYCODONE HCL [Concomitant]
     Dosage: FREQENCY DAILY
     Dates: start: 20110507
  7. NAPROXEN [Concomitant]
     Dosage: FREQENCY DAILY
     Dates: start: 20110408
  8. MOVICOLON [Concomitant]
     Dates: start: 20110510

REACTIONS (1)
  - PYREXIA [None]
